FAERS Safety Report 25317073 (Version 1)
Quarter: 2025Q2

REPORT INFORMATION
  Report Type: Spontaneous
  Country: TR (occurrence: TR)
  Receive Date: 20250515
  Receipt Date: 20250515
  Transmission Date: 20250717
  Serious: Yes (Death, Hospitalization, Other)
  Sender: AMGEN
  Company Number: TR-AMGEN-TURSP2025090709

PATIENT
  Age: 16 Year
  Sex: Female

DRUGS (4)
  1. BEVACIZUMAB [Suspect]
     Active Substance: BEVACIZUMAB
     Indication: Colorectal cancer stage III
     Route: 065
  2. FLUOROURACIL [Concomitant]
     Active Substance: FLUOROURACIL
     Indication: Colorectal cancer stage III
  3. LEUCOVORIN [Concomitant]
     Active Substance: LEUCOVORIN\LEUCOVORIN CALCIUM
     Indication: Colorectal cancer stage III
  4. OXALIPLATIN [Concomitant]
     Active Substance: OXALIPLATIN
     Indication: Colorectal cancer stage III

REACTIONS (8)
  - Death [Fatal]
  - Adenocarcinoma of colon [Unknown]
  - Pelvic adhesions [Unknown]
  - Ileus [Unknown]
  - Gastrointestinal stoma complication [Unknown]
  - Abdominal adhesions [Unknown]
  - Metastases to liver [Unknown]
  - Off label use [Unknown]
